FAERS Safety Report 18425560 (Version 1)
Quarter: 2020Q4

REPORT INFORMATION
  Report Type: Spontaneous
  Country: US (occurrence: US)
  Receive Date: 20201024
  Receipt Date: 20201024
  Transmission Date: 20210114
  Serious: Yes (Life-Threatening, Other)
  Sender: FDA-Public Use
  Company Number: None

PATIENT
  Age: 65 Year
  Sex: Male
  Weight: 67.5 kg

DRUGS (1)
  1. SINGULAIR [Suspect]
     Active Substance: MONTELUKAST SODIUM
     Indication: ASTHMA
     Dosage: ?          QUANTITY:1 TABLET(S);?
     Route: 048
     Dates: start: 19990101, end: 20200915

REACTIONS (6)
  - Condition aggravated [None]
  - Influenza like illness [None]
  - Abdominal pain [None]
  - Insomnia [None]
  - Depression suicidal [None]
  - Anxiety [None]

NARRATIVE: CASE EVENT DATE: 20201024
